FAERS Safety Report 6028567-0 (Version None)
Quarter: 2008Q4

REPORT INFORMATION
  Report Type: 
  Country: None (occurrence: None)
  Receive Date: 20081222
  Receipt Date: 20081030
  Transmission Date: 20090506
  Serious: No
  Sender: FDA-Public Use
  Company Number: US--WYE-H06632108

PATIENT
  Age: 58 Year
  Sex: Female
  Weight: 63.56 kg

DRUGS (4)
  1. PRISTIQ [Suspect]
     Indication: DEPRESSION
     Dosage: 50 MG 1X PER 1 DAY, ORAL
     Route: 048
     Dates: start: 20081027
  2. TRAZODONE HCL [Concomitant]
  3. TRAMADOL HCL [Concomitant]
  4. ESTROGENS (ESTROGENS) [Concomitant]

REACTIONS (2)
  - ALOPECIA [None]
  - POOR QUALITY SLEEP [None]
